FAERS Safety Report 8479813-5 (Version None)
Quarter: 2012Q2

REPORT INFORMATION
  Report Type: 
  Country: None (occurrence: None)
  Receive Date: 20120629
  Receipt Date: 20120619
  Transmission Date: 20120825
  Serious: Yes (Hospitalization, Other)
  Sender: FDA-Public Use
  Company Number: US-ELI_LILLY_AND_COMPANY-US200802002285

PATIENT
  Weight: 43.5 kg

DRUGS (3)
  1. HUMATROPE [Suspect]
     Indication: DWARFISM
     Dosage: 0.8 MG, QD
     Route: 058
     Dates: start: 20000701, end: 20081110
  2. MIRALAX [Concomitant]
     Indication: CONSTIPATION
     Dosage: UNK, OTHER
     Route: 048
     Dates: start: 20040224
  3. LETROZOLE [Concomitant]
     Indication: DELAYED PUBERTY
     Dosage: 2.5 MG, QD
     Route: 048
     Dates: start: 20060901

REACTIONS (2)
  - ARNOLD-CHIARI MALFORMATION [None]
  - SYRINGOMYELIA [None]
